FAERS Safety Report 18671717 (Version 2)
Quarter: 2021Q1

REPORT INFORMATION
  Report Type: Report from Study
  Country: None (occurrence: BR)
  Receive Date: 20201229
  Receipt Date: 20210127
  Transmission Date: 20210419
  Serious: No
  Sender: FDA-Public Use
  Company Number: BR-ABBVIE-20K-020-3702088-00

PATIENT
  Sex: Female
  Weight: 51 kg

DRUGS (4)
  1. RINVOQ [Suspect]
     Active Substance: UPADACITINIB
     Indication: RHEUMATOID ARTHRITIS
     Route: 048
     Dates: start: 20201021, end: 2020
  2. PRELONE [Concomitant]
     Active Substance: PREDNISOLONE
     Indication: ARTHRITIS
     Dosage: UNKNOWN
  3. HUMIRA [Suspect]
     Active Substance: ADALIMUMAB
     Indication: PRODUCT USED FOR UNKNOWN INDICATION
     Route: 058
  4. LOSARTAN. [Concomitant]
     Active Substance: LOSARTAN
     Indication: HYPERTENSION
     Dosage: ONE DOSE IN THE MORNING AND ONE AT NIGHT

REACTIONS (8)
  - Genital blister [Recovered/Resolved]
  - Anal blister [Recovered/Resolved]
  - Arthralgia [Not Recovered/Not Resolved]
  - Skin toxicity [Recovered/Resolved]
  - Intentional product misuse [Unknown]
  - Pain [Not Recovered/Not Resolved]
  - Blister rupture [Recovered/Resolved]
  - Haemorrhoids [Recovered/Resolved]

NARRATIVE: CASE EVENT DATE: 2020
